FAERS Safety Report 10694702 (Version 2)
Quarter: 2015Q2

REPORT INFORMATION
  Report Type: Spontaneous
  Country: US (occurrence: US)
  Receive Date: 20150107
  Receipt Date: 20150515
  Transmission Date: 20150821
  Serious: Yes (Other)
  Sender: FDA-Public Use
  Company Number: US-BAYER-2015-001584

PATIENT
  Age: 20 Year
  Sex: Female

DRUGS (1)
  1. SKYLA [Suspect]
     Active Substance: LEVONORGESTREL
     Indication: CONTRACEPTION
     Dosage: 14 MCG/24HR, CONT
     Route: 015
     Dates: start: 20141230

REACTIONS (4)
  - Pelvic pain [Not Recovered/Not Resolved]
  - Abdominal pain lower [Recovering/Resolving]
  - Headache [None]
  - Genital haemorrhage [None]

NARRATIVE: CASE EVENT DATE: 20141230
